FAERS Safety Report 6709414-8 (Version None)
Quarter: 2010Q2

REPORT INFORMATION
  Report Type: 
  Country: None (occurrence: None)
  Receive Date: 20100504
  Receipt Date: 20100422
  Transmission Date: 20101027
  Serious: Yes (Other)
  Sender: FDA-Public Use
  Company Number: SE-PFIZER INC-2010051325

PATIENT
  Age: 17 Year
  Sex: Male
  Weight: 75 kg

DRUGS (1)
  1. ZOLOFT [Suspect]
     Dosage: 25 MG, ONE SINGLE TABLET
     Dates: start: 20100417

REACTIONS (12)
  - ABDOMINAL PAIN UPPER [None]
  - ANXIETY [None]
  - DIZZINESS [None]
  - FATIGUE [None]
  - HEADACHE [None]
  - HYPOAESTHESIA [None]
  - INSOMNIA [None]
  - LIP SWELLING [None]
  - MALAISE [None]
  - NAUSEA [None]
  - SWOLLEN TONGUE [None]
  - VISION BLURRED [None]
